FAERS Safety Report 13567600 (Version 1)
Quarter: 2017Q2

REPORT INFORMATION
  Report Type: Spontaneous
  Country: CA (occurrence: CA)
  Receive Date: 20170521
  Receipt Date: 20170521
  Transmission Date: 20170830
  Serious: Yes (Disabling)
  Sender: FDA-Public Use
  Company Number: None

PATIENT
  Age: 26 Year
  Sex: Female
  Weight: 52.21 kg

DRUGS (1)
  1. JAYDESS [Suspect]
     Active Substance: LEVONORGESTREL

REACTIONS (9)
  - Migraine [None]
  - Vertigo [None]
  - Hypotension [None]
  - Dizziness [None]
  - Fatigue [None]
  - Feeling abnormal [None]
  - Ear disorder [None]
  - Headache [None]
  - Ear discomfort [None]

NARRATIVE: CASE EVENT DATE: 20170304
